FAERS Safety Report 4911249-3 (Version None)
Quarter: 2006Q1

REPORT INFORMATION
  Report Type: 
  Country: None (occurrence: None)
  Receive Date: 20060209
  Receipt Date: 20060201
  Transmission Date: 20060701
  Serious: Yes (Other)
  Sender: FDA-Public Use
  Company Number: HQWYE634502FEB06

PATIENT
  Sex: Male

DRUGS (3)
  1. ADVIL [Suspect]
     Indication: ARTHRALGIA
     Dosage: 2 CAPLETS X 1 ORAL
     Route: 048
     Dates: start: 20060131, end: 20060131
  2. CLARITIN [Concomitant]
  3. PANTOLOC (PANTOPRAZOLE) [Concomitant]

REACTIONS (6)
  - DYSPNOEA [None]
  - SOMNOLENCE [None]
  - SWELLING FACE [None]
  - SWOLLEN TONGUE [None]
  - THROAT TIGHTNESS [None]
  - URTICARIA GENERALISED [None]
